FAERS Safety Report 6638310-X (Version None)
Quarter: 2010Q1

REPORT INFORMATION
  Report Type: 
  Country: None (occurrence: None)
  Receive Date: 20100301
  Receipt Date: 20090608
  Transmission Date: 20100710
  Serious: Yes (Hospitalization, Other)
  Sender: FDA-Public Use
  Company Number: RB-16536-2009

PATIENT
  Age: 1 Day
  Sex: Male

DRUGS (3)
  1. SUBOXONE [Suspect]
     Indication: DRUG DEPENDENCE
     Dosage: 8 MG QD TRANSPLACENTAL
     Route: 064
     Dates: start: 20080101, end: 20080909
  2. SUBUTEX [Suspect]
     Indication: DRUG DEPENDENCE
     Dosage: 8 MG TID TRANSPLACENTAL, DOSING INFORMATION UNKNOWN. TRANSMAMMARY
     Route: 063
     Dates: start: 20080910, end: 20090330
  3. SUBUTEX [Suspect]
     Indication: DRUG DEPENDENCE
     Dosage: 8 MG TID TRANSPLACENTAL, DOSING INFORMATION UNKNOWN. TRANSMAMMARY
     Route: 063
     Dates: start: 20090330, end: 20090401

REACTIONS (2)
  - DRUG EXPOSURE VIA BREAST MILK [None]
  - DRUG WITHDRAWAL SYNDROME NEONATAL [None]
